FAERS Safety Report 24199745 (Version 2)
Quarter: 2024Q3

REPORT INFORMATION
  Report Type: Spontaneous
  Country: US (occurrence: US)
  Receive Date: 20240812
  Receipt Date: 20240829
  Transmission Date: 20241017
  Serious: No
  Sender: CSL BEHRING
  Company Number: US-BEH-2024177021

PATIENT
  Age: 13 Year
  Sex: Female

DRUGS (1)
  1. HIZENTRA [Suspect]
     Active Substance: HUMAN IMMUNOGLOBULIN G
     Indication: Primary immunodeficiency syndrome
     Dosage: 10 G, QW
     Route: 065

REACTIONS (5)
  - Infusion site swelling [Unknown]
  - Illness [Unknown]
  - Infusion site scar [Unknown]
  - Infusion site discharge [Unknown]
  - Product dose omission issue [Unknown]
